FAERS Safety Report 7718296-7 (Version None)
Quarter: 2011Q3

REPORT INFORMATION
  Report Type: 
  Country: None (occurrence: None)
  Receive Date: 20110830
  Receipt Date: 20110824
  Transmission Date: 20111222
  Serious: Yes (Life-Threatening, Other)
  Sender: FDA-Public Use
  Company Number: PHHY2011JP26177

PATIENT
  Sex: Male

DRUGS (32)
  1. CLOZAPINE [Suspect]
     Dosage: 175 MG, UNK
     Route: 048
     Dates: start: 20101129, end: 20101202
  2. CLOZAPINE [Suspect]
     Dosage: 400 MG, UNK
     Route: 048
     Dates: start: 20110204, end: 20110210
  3. UNSPECIFIED [Concomitant]
     Indication: SCHIZOPHRENIA
     Dosage: 50 MG, UNK
     Route: 048
     Dates: start: 20100309
  4. LOSIZOPILON [Concomitant]
     Dosage: 300 MG, UNK
     Route: 048
     Dates: start: 20101110
  5. LEVOTOMIN [Concomitant]
     Dosage: 100 MG, UNK
     Route: 048
     Dates: start: 20101125
  6. LEVOTHYROXINE SODIUM [Concomitant]
     Indication: SCHIZOPHRENIA
     Dosage: 50 UG, UNK
     Route: 048
     Dates: start: 20100916
  7. CLOZAPINE [Suspect]
     Dosage: 200 MG, UNK
     Route: 048
     Dates: start: 20101203, end: 20101220
  8. CLOZAPINE [Suspect]
     Dosage: 300 MG, UNK
     Route: 048
     Dates: start: 20110108, end: 20110114
  9. CLOZAPINE [Suspect]
     Dosage: 350 MG, UNK
     Route: 048
     Dates: start: 20110115, end: 20110203
  10. CHLORPROMAZINE HYDROCHLORIDE [Concomitant]
     Route: 048
  11. DEPAKENE [Concomitant]
     Indication: SCHIZOPHRENIA
     Dosage: 600 MG, UNK
     Route: 048
     Dates: start: 20100309
  12. CLOZAPINE [Suspect]
     Dosage: 25 MG, UNK
     Route: 048
     Dates: start: 20101105, end: 20101107
  13. CLOZAPINE [Suspect]
     Dosage: 100 MG, UNK
     Route: 048
     Dates: start: 20101115, end: 20101117
  14. CLOZAPINE [Suspect]
     Dosage: 450 MG, UNK
     Route: 048
     Dates: start: 20110211, end: 20110224
  15. FLUNITRAZEPAM [Concomitant]
     Indication: SCHIZOPHRENIA
     Dosage: 2 MG, UNK
     Route: 048
     Dates: start: 20100415
  16. CLOZAPINE [Suspect]
     Dosage: 150 MG, UNK
     Route: 048
     Dates: start: 20101126, end: 20101128
  17. HALOPERIDOL [Concomitant]
     Dosage: 5 MG, UNK
     Route: 048
  18. LEVOTOMIN [Concomitant]
     Dosage: 25 MG, UNK
     Route: 048
  19. AMOBAN [Concomitant]
     Indication: SCHIZOPHRENIA
     Dosage: 7.5 MG, UNK
     Route: 048
     Dates: start: 20100415, end: 20101111
  20. CLOZAPINE [Suspect]
     Dosage: 75 MG, UNK
     Route: 048
     Dates: start: 20101112, end: 20101114
  21. CLOZAPINE [Suspect]
     Dosage: 125 MG, UNK
     Route: 048
     Dates: start: 20101118, end: 20101125
  22. CLOZAPINE [Suspect]
     Indication: SCHIZOPHRENIA
     Dosage: 12.5 MG, UNK
     Route: 048
     Dates: start: 20101104, end: 20101104
  23. CLOZAPINE [Suspect]
     Dosage: 500 MG, UNK
     Route: 048
     Dates: start: 20110225, end: 20110324
  24. HALOPERIDOL [Concomitant]
     Dosage: 20 MG, UNK
     Route: 048
  25. LEVOTOMIN [Concomitant]
     Dosage: 50 MG, UNK
     Route: 048
  26. LAMICTAL [Concomitant]
     Indication: SCHIZOPHRENIA
     Dosage: 200 MG, UNK
     Route: 048
     Dates: start: 20100902, end: 20101110
  27. CLOZAPINE [Suspect]
     Dosage: 50 MG, UNK
     Route: 048
     Dates: start: 20101108, end: 20101111
  28. CLOZAPINE [Suspect]
     Dosage: 150 MG, UNK
     Route: 048
     Dates: start: 20101221, end: 20110103
  29. CLOZAPINE [Suspect]
     Dosage: 200 MG, UNK
     Route: 048
     Dates: start: 20110104, end: 20110107
  30. CLOZAPINE [Suspect]
     Dosage: 600 MG, UNK
     Route: 048
     Dates: start: 20110325, end: 20110329
  31. HALOPERIDOL [Concomitant]
     Dosage: 30 MG, UNK
     Route: 048
     Dates: start: 20101125
  32. CHLORPROMAZINE HCL [Concomitant]
     Dosage: 100 MG, UNK
     Route: 048
     Dates: start: 20101014, end: 20101118

REACTIONS (3)
  - GASTROINTESTINAL HAEMORRHAGE [None]
  - HAEMATEMESIS [None]
  - DRUG INEFFECTIVE [None]
